FAERS Safety Report 20319014 (Version 2)
Quarter: 2022Q1

REPORT INFORMATION
  Report Type: Other
  Country: UA (occurrence: None)
  Receive Date: 20220110
  Receipt Date: 20220121
  Transmission Date: 20220424
  Serious: Yes (Hospitalization)
  Sender: FDA-Public Use
  Company Number: UA-ROCHE-2995032

PATIENT
  Sex: Female

DRUGS (4)
  1. OSELTAMIVIR [Suspect]
     Active Substance: OSELTAMIVIR
     Indication: Product used for unknown indication
     Route: 064
  2. OFLOXACIN [Concomitant]
     Active Substance: OFLOXACIN
     Indication: Product used for unknown indication
     Route: 064
  3. AZITHROMYCIN [Concomitant]
     Active Substance: AZITHROMYCIN
     Indication: Product used for unknown indication
     Route: 064
  4. AMBROXOL HYDROCHLORIDE [Concomitant]
     Active Substance: AMBROXOL HYDROCHLORIDE
     Indication: Product used for unknown indication
     Route: 064

REACTIONS (6)
  - Congenital infection [Recovered/Resolved]
  - Erythema toxicum neonatorum [Recovered/Resolved]
  - Milia [Recovered/Resolved]
  - Polycythaemia neonatorum [Recovered/Resolved]
  - Jaundice neonatal [Recovered/Resolved]
  - Foetal exposure during pregnancy [Unknown]
